FAERS Safety Report 6429527-8 (Version None)
Quarter: 2009Q4

REPORT INFORMATION
  Report Type: 
  Country: None (occurrence: None)
  Receive Date: 20091022
  Receipt Date: 20091014
  Transmission Date: 20100525
  Serious: Yes (Death)
  Sender: FDA-Public Use
  Company Number: M2009-024

PATIENT
  Age: 43 Year
  Sex: Male
  Weight: 136.0791 kg

DRUGS (3)
  1. MIX #1 M2009-024-1 STD GLY RED TOP PHYSICIAN [Suspect]
     Indication: HYPERSENSITIVITY
     Dosage: 0.2 ML WEEKLY INJECTION
     Dates: start: 20090505
  2. MIX #2 M2009-024-2 STD GLY RED TOP PHYSICIAN [Suspect]
     Indication: HYPERSENSITIVITY
     Dosage: 0.2 ML WEEKLY INJECTION
     Dates: start: 20090505
  3. ACE INHIBITOR [Concomitant]

REACTIONS (8)
  - DYSPNOEA [None]
  - FEELING HOT [None]
  - GENERALISED ERYTHEMA [None]
  - LIP SWELLING [None]
  - OBSTRUCTIVE AIRWAYS DISORDER [None]
  - POST PROCEDURAL COMPLICATION [None]
  - PRURITUS [None]
  - TONGUE OEDEMA [None]
